FAERS Safety Report 11212230 (Version 3)
Quarter: 2016Q1

REPORT INFORMATION
  Report Type: Report from Study
  Country: CA (occurrence: CA)
  Receive Date: 20150623
  Receipt Date: 20160104
  Transmission Date: 20160525
  Serious: Yes (Other)
  Sender: FDA-Public Use
  Company Number: CA-AMGEN-CANSL2015041652

PATIENT
  Age: 55 Year
  Sex: Female
  Weight: 44.44 kg

DRUGS (3)
  1. PROLIA [Suspect]
     Active Substance: DENOSUMAB
     Indication: OSTEOPOROSIS POSTMENOPAUSAL
     Dosage: 60 MG, Q6MO
     Route: 058
     Dates: start: 20140429
  2. VITAMINS                           /00067501/ [Concomitant]
     Active Substance: VITAMINS
  3. CALCIUM                            /00060701/ [Concomitant]
     Active Substance: CALCIUM
     Indication: SUPPLEMENTATION THERAPY

REACTIONS (8)
  - Pyelocaliectasis [Unknown]
  - Cough [Recovered/Resolved]
  - Nephrolithiasis [Unknown]
  - Hepatic cyst [Unknown]
  - Cholelithiasis [Unknown]
  - Umbilical hernia [Unknown]
  - Renal colic [Unknown]
  - Periportal oedema [Unknown]

NARRATIVE: CASE EVENT DATE: 201504
